FAERS Safety Report 7283947-0 (Version None)
Quarter: 2011Q1

REPORT INFORMATION
  Report Type: 
  Country: None (occurrence: None)
  Receive Date: 20110209
  Receipt Date: 20110128
  Transmission Date: 20110831
  Serious: Yes (Hospitalization)
  Sender: FDA-Public Use
  Company Number: US-ASTRAZENECA-2011SE04872

PATIENT
  Age: 88 Year
  Sex: Female

DRUGS (3)
  1. FLECAINIDE [Interacting]
  2. METOPROLOL XL [Suspect]
     Route: 048
  3. ASPIRIN [Concomitant]

REACTIONS (5)
  - ELECTROCARDIOGRAM QRS COMPLEX PROLONGED [None]
  - HYPERKALAEMIA [None]
  - DEVICE MALFUNCTION [None]
  - DRUG INTERACTION [None]
  - RENAL FAILURE ACUTE [None]
